FAERS Safety Report 19960223 (Version 1)
Quarter: 2021Q4

REPORT INFORMATION
  Report Type: Spontaneous
  Country: CN (occurrence: CN)
  Receive Date: 20211015
  Receipt Date: 20211015
  Transmission Date: 20220303
  Serious: Yes (Hospitalization)
  Sender: FDA-Public Use
  Company Number: CN-BAXTER-2021BAX026932

PATIENT
  Age: 18 Year
  Sex: Male
  Weight: 93.4 kg

DRUGS (13)
  1. CYCLOPHOSPHAMIDE [Suspect]
     Active Substance: CYCLOPHOSPHAMIDE
     Indication: Acute lymphocytic leukaemia
     Dosage: INTRA-PUMP INJECTION,CYCLOPHOSPHAMIDE FOR INJECTION 40 MG + 0.9% SODIUM CHLORIDE INJECTION 250 ML
     Route: 050
     Dates: start: 20200709, end: 20200711
  2. CYCLOPHOSPHAMIDE [Suspect]
     Active Substance: CYCLOPHOSPHAMIDE
     Dosage: DOSE REINTRODUCED
     Route: 050
  3. SODIUM CHLORIDE [Suspect]
     Active Substance: SODIUM CHLORIDE
     Indication: Medication dilution
     Dosage: CYCLOPHOSPHAMIDE FOR INJECTION 40 MG + 0.9% SODIUM CHLORIDE INJECTION 250 ML
     Route: 050
     Dates: start: 20200709, end: 20200711
  4. SODIUM CHLORIDE [Suspect]
     Active Substance: SODIUM CHLORIDE
     Dosage: DOSE REINTRODUCED; DILUTION FOR CYCLOPHOSPHAMIDE
     Route: 050
  5. SODIUM CHLORIDE [Suspect]
     Active Substance: SODIUM CHLORIDE
     Dosage: VINORELBINE TARTRATE INJECTION 40 MG + 0.9% SODIUM CHLORIDE INJECTION 100 ML
     Route: 041
     Dates: start: 20200712, end: 20200719
  6. SODIUM CHLORIDE [Suspect]
     Active Substance: SODIUM CHLORIDE
     Dosage: DOSE REINTRODUCED; DILUTION FOR VINORELBINE TARTRATE
     Route: 041
  7. DEXTROSE [Suspect]
     Active Substance: DEXTROSE
     Indication: Medication dilution
     Dosage: PIRARUBICIN HYDROCHLORIDE FOR INJECTION 40MG + 5% GLUCOSE INJECTION 250ML
     Route: 041
     Dates: start: 20200712, end: 20200712
  8. DEXTROSE [Suspect]
     Active Substance: DEXTROSE
     Dosage: DOSE REINTRODUCED; DILUTION FOR PIRARUBICIN HYDROCHLORIDE
     Route: 041
  9. VINORELBINE TARTRATE [Suspect]
     Active Substance: VINORELBINE TARTRATE
     Indication: Acute lymphocytic leukaemia
     Dosage: PRIOR ADVERSE DRUG
     Route: 041
  10. VINORELBINE TARTRATE [Suspect]
     Active Substance: VINORELBINE TARTRATE
     Dosage: VINORELBINE TARTRATE INJECTION 40 MG + 0.9% SODIUM CHLORIDE 100ML
     Route: 041
     Dates: start: 20200712, end: 20200719
  11. VINORELBINE TARTRATE [Suspect]
     Active Substance: VINORELBINE TARTRATE
     Dosage: DOSE REINTRODUCED, VINORELBINE TARTRATE INJECTION + 0.9% SODIUM CHLORIDE
     Route: 041
  12. PIRARUBICIN HYDROCHLORIDE [Suspect]
     Active Substance: PIRARUBICIN HYDROCHLORIDE
     Indication: Acute lymphocytic leukaemia
     Dosage: PIRARUBICIN HYDROCHLORIDE FOR INJECTION 40MG + 5% GLUCOSE INJECTION 250ML
     Route: 041
     Dates: start: 20200712, end: 20200712
  13. PIRARUBICIN HYDROCHLORIDE [Suspect]
     Active Substance: PIRARUBICIN HYDROCHLORIDE
     Dosage: DOSE REINTRODUCED
     Route: 041

REACTIONS (1)
  - Myelosuppression [Recovering/Resolving]

NARRATIVE: CASE EVENT DATE: 20200724
